FAERS Safety Report 5682878-7 (Version None)
Quarter: 2008Q1

REPORT INFORMATION
  Report Type: 
  Country: None (occurrence: None)
  Receive Date: 20080327
  Receipt Date: 20080318
  Transmission Date: 20080703
  Serious: Yes (Other)
  Sender: FDA-Public Use
  Company Number: IN-ABBOTT-08P-078-0443032-00

PATIENT
  Age: 8 Year
  Sex: Female

DRUGS (2)
  1. VALPROIC ACID [Suspect]
     Indication: EPILEPSY
  2. VALPROIC ACID [Suspect]
     Dosage: DOSE DECREASED BY 50%

REACTIONS (1)
  - PSEUDOHYPOPARATHYROIDISM [None]
